FAERS Safety Report 22139354 (Version 2)
Quarter: 2023Q2

REPORT INFORMATION
  Report Type: Spontaneous
  Country: TR (occurrence: TR)
  Receive Date: 20230327
  Receipt Date: 20230407
  Transmission Date: 20230721
  Serious: Yes (Other)
  Sender: FDA-Public Use
  Company Number: TR-JNJFOC-20230360266

PATIENT
  Age: 7 Year
  Sex: Male

DRUGS (2)
  1. CONCERTA [Suspect]
     Active Substance: METHYLPHENIDATE HYDROCHLORIDE
     Indication: Product used for unknown indication
     Route: 065
  2. CONCERTA [Suspect]
     Active Substance: METHYLPHENIDATE HYDROCHLORIDE
     Dosage: 4-5 MONTHS AGO
     Route: 065
     Dates: end: 20230320

REACTIONS (4)
  - Hypermetropia [Unknown]
  - Visual impairment [Recovering/Resolving]
  - Pruritus [Unknown]
  - Rash [Unknown]
